FAERS Safety Report 8757826 (Version 3)
Quarter: 2012Q4

REPORT INFORMATION
  Report Type: 
  Country: DE (occurrence: DE)
  Receive Date: 20120828
  Receipt Date: 20121106
  Transmission Date: 20130627
  Serious: Yes (Other)
  Sender: FDA-Public Use
  Company Number: DE-JNJFOC-20120810122

PATIENT
  Age: 13 Year
  Sex: Female
  Weight: 45 kg

DRUGS (5)
  1. REMICADE [Suspect]
     Indication: CROHN^S DISEASE
     Dosage: Initiated at age 11 years
     Route: 042
     Dates: start: 20100628, end: 201107
  2. REMICADE [Suspect]
     Indication: CROHN^S DISEASE
     Dosage: total of 19 infusions administered; total dose 5815 mg
     Route: 042
     Dates: start: 201107, end: 20120816
  3. FERRO-SANOL [Concomitant]
     Route: 048
     Dates: start: 20100830, end: 20101012
  4. AZULFIDINE [Concomitant]
     Route: 048
     Dates: start: 20120105, end: 20120816
  5. AZULFIDINE [Concomitant]
     Route: 048
     Dates: start: 20120105, end: 20120816

REACTIONS (1)
  - Ewing^s sarcoma [Unknown]
